FAERS Safety Report 5822860-X (Version None)
Quarter: 2008Q3

REPORT INFORMATION
  Report Type: 
  Country: None (occurrence: None)
  Receive Date: 20080725
  Receipt Date: 20080718
  Transmission Date: 20090109
  Serious: Yes (Hospitalization, Disabling)
  Sender: FDA-Public Use
  Company Number: US-GENENTECH-264798

PATIENT
  Sex: Male
  Weight: 114.29 kg

DRUGS (3)
  1. BEVACIZUMAB [Suspect]
     Indication: NON-SMALL CELL LUNG CANCER
     Dosage: 15 MG/KG, Q3W
     Route: 042
     Dates: start: 20080515, end: 20080626
  2. CARBOPLATIN [Concomitant]
     Indication: LUNG NEOPLASM MALIGNANT
     Dosage: 1135 MG, Q21D
     Route: 042
     Dates: start: 20080515
  3. TAXOL [Concomitant]
     Indication: LUNG NEOPLASM MALIGNANT
     Dosage: 454 MG, Q21D
     Route: 042
     Dates: start: 20080515

REACTIONS (2)
  - HAEMOPTYSIS [None]
  - PLEURAL EFFUSION [None]
